FAERS Safety Report 7118822-5 (Version None)
Quarter: 2010Q4

REPORT INFORMATION
  Report Type: 
  Country: None (occurrence: None)
  Receive Date: 20101123
  Receipt Date: 20100917
  Transmission Date: 20110411
  Serious: No
  Sender: FDA-Public Use
  Company Number: US-KINGPHARMUSA00001-K201001165

PATIENT
  Age: 88 Year
  Sex: Male
  Weight: 61.678 kg

DRUGS (1)
  1. FLECTOR [Suspect]
     Indication: BACK PAIN
     Dosage: 1 PATCH, QHS FOR 12H, PRN
     Route: 061
     Dates: start: 20100901

REACTIONS (2)
  - DRUG EFFECT DECREASED [None]
  - PARAESTHESIA [None]
